FAERS Safety Report 9405170 (Version 2)
Quarter: 2013Q3

REPORT INFORMATION
  Report Type: Spontaneous
  Country: US (occurrence: US)
  Receive Date: 20130717
  Receipt Date: 20130724
  Transmission Date: 20140515
  Serious: Yes (Other)
  Sender: FDA-Public Use
  Company Number: US-PFIZER INC-2013208628

PATIENT
  Age: 56 Year
  Sex: Female
  Weight: 75.3 kg

DRUGS (4)
  1. NEURONTIN [Suspect]
     Indication: RESTLESS LEGS SYNDROME
     Dosage: 600 MG, 1X/DAY
  2. PROTONIX [Suspect]
     Indication: GASTRIC ULCER
     Dosage: 40 MG, 1X/DAY
  3. TEMODAR [Concomitant]
     Indication: CHEMOTHERAPY
     Dosage: 100/20MG FIVE DAY IN A MONTH
  4. ZOFRAN [Concomitant]
     Indication: NAUSEA
     Dosage: 8 MG, AS NEEDED

REACTIONS (2)
  - Off label use [Unknown]
  - Brain neoplasm [Unknown]
